FAERS Safety Report 19694674 (Version 1)
Quarter: 2021Q3

REPORT INFORMATION
  Report Type: Spontaneous
  Country: US (occurrence: US)
  Receive Date: 20210813
  Receipt Date: 20210813
  Transmission Date: 20211014
  Serious: Yes (Other)
  Sender: FDA-Public Use
  Company Number: US-CHIESI-2021CHF04005

PATIENT

DRUGS (2)
  1. KENGREAL [Suspect]
     Active Substance: CANGRELOR
     Indication: PERCUTANEOUS CORONARY INTERVENTION
     Dosage: 1 UNK
     Route: 042
  2. KENGREAL [Suspect]
     Active Substance: CANGRELOR
     Indication: OFF LABEL USE

REACTIONS (2)
  - Vascular stent thrombosis [Recovered/Resolved]
  - Off label use [Unknown]
